FAERS Safety Report 12203301 (Version 2)
Quarter: 2016Q1

REPORT INFORMATION
  Report Type: Spontaneous
  Country: US (occurrence: US)
  Receive Date: 20160323
  Receipt Date: 20160331
  Transmission Date: 20160526
  Serious: No
  Sender: FDA-Public Use
  Company Number: PHEH2016US006714

PATIENT
  Sex: Female

DRUGS (2)
  1. SANDOSTATIN LAR DEPOT [Suspect]
     Active Substance: OCTREOTIDE ACETATE
     Indication: CARCINOID SYNDROME
  2. SANDOSTATIN LAR DEPOT [Suspect]
     Active Substance: OCTREOTIDE ACETATE
     Indication: HEPATIC CANCER
     Dosage: UNK
     Route: 065
     Dates: start: 201311

REACTIONS (6)
  - Product use issue [Unknown]
  - Fatigue [Unknown]
  - Dizziness [Unknown]
  - Heart rate irregular [Unknown]
  - Weight increased [Unknown]
  - Cholelithiasis [Unknown]
